FAERS Safety Report 7182722-5 (Version None)
Quarter: 2010Q4

REPORT INFORMATION
  Report Type: 
  Country: None (occurrence: None)
  Receive Date: 20101221
  Receipt Date: 20100526
  Transmission Date: 20110411
  Serious: No
  Sender: FDA-Public Use
  Company Number: US-AMGEN-KDL406993

PATIENT

DRUGS (7)
  1. ENBREL [Suspect]
     Indication: PSORIASIS
     Dosage: 50 MG, 2 TIMES/WK
     Route: 058
     Dates: start: 20100408
  2. ATORVASTATIN CALCIUM [Concomitant]
     Dosage: UNK UNK, UNK
     Dates: start: 20060601
  3. METFORMIN HCL [Concomitant]
     Dosage: UNK UNK, UNK
     Dates: start: 20090601
  4. FEXOFENADINE HCL [Concomitant]
     Dosage: UNK UNK, UNK
     Dates: start: 20090101
  5. CITALOPRAM [Concomitant]
     Dosage: UNK UNK, UNK
     Dates: start: 20080601
  6. CALCIPOTRIENE/BETAMETHASONE DIPROPIONATE [Concomitant]
     Dosage: UNK UNK, UNK
     Dates: start: 20050101
  7. FLUCINOLONE ACETONIDE [Concomitant]
     Dosage: UNK UNK, UNK
     Dates: start: 20050101

REACTIONS (4)
  - CONSTIPATION [None]
  - DIARRHOEA [None]
  - ENTERITIS [None]
  - NAUSEA [None]
